FAERS Safety Report 20367148 (Version 5)
Quarter: 2023Q4

REPORT INFORMATION
  Report Type: Spontaneous
  Country: CA (occurrence: CA)
  Receive Date: 20220123
  Receipt Date: 20231025
  Transmission Date: 20240110
  Serious: Yes (Other)
  Sender: FDA-Public Use
  Company Number: CA-CELLTRION INC.-2018CA024671

PATIENT

DRUGS (25)
  1. INFLECTRA [Suspect]
     Active Substance: INFLIXIMAB-DYYB
     Indication: Crohn^s disease
     Dosage: 320 MG, Q 0, 2, 6 WEEKS, THEN EVERY 8 WEEKS
     Route: 041
     Dates: start: 20180927
  2. INFLECTRA [Suspect]
     Active Substance: INFLIXIMAB-DYYB
     Dosage: 320 MG, EVERY 0, 2, 6 , THEN EVERY 8 WEEKS
     Route: 042
     Dates: start: 20181108
  3. INFLECTRA [Suspect]
     Active Substance: INFLIXIMAB-DYYB
     Dosage: 320 MG, EVERY 0, 2, 6 , THEN EVERY 8 WEEKS
     Route: 042
     Dates: start: 20190116
  4. INFLECTRA [Suspect]
     Active Substance: INFLIXIMAB-DYYB
     Dosage: 320 MG, EVERY 0, 2, 6 , THEN EVERY 8 WEEKS
     Route: 041
     Dates: start: 20190509
  5. INFLECTRA [Suspect]
     Active Substance: INFLIXIMAB-DYYB
     Dosage: 400MG, EVERY 8 WEEKS
     Route: 041
     Dates: start: 20190705
  6. INFLECTRA [Suspect]
     Active Substance: INFLIXIMAB-DYYB
     Dosage: 400MG  EVERY 8 WEEKS
     Route: 042
     Dates: start: 20200220
  7. INFLECTRA [Suspect]
     Active Substance: INFLIXIMAB-DYYB
     Dosage: 400MG  EVERY 8 WEEKS
     Route: 042
     Dates: start: 20200415
  8. INFLECTRA [Suspect]
     Active Substance: INFLIXIMAB-DYYB
     Dosage: 400MG  EVERY 8 WEEKS
     Route: 042
     Dates: start: 20200618
  9. INFLECTRA [Suspect]
     Active Substance: INFLIXIMAB-DYYB
     Dosage: 400MG  EVERY 8 WEEKS
     Route: 042
     Dates: start: 20200825
  10. INFLECTRA [Suspect]
     Active Substance: INFLIXIMAB-DYYB
     Dosage: 400MG  EVERY 8 WEEKS
     Route: 042
     Dates: start: 20201118
  11. INFLECTRA [Suspect]
     Active Substance: INFLIXIMAB-DYYB
     Dosage: 400MG  EVERY 8 WEEKS
     Route: 042
     Dates: start: 20210114
  12. INFLECTRA [Suspect]
     Active Substance: INFLIXIMAB-DYYB
     Dosage: 400MG  EVERY 8 WEEKS
     Route: 042
     Dates: start: 20210310
  13. INFLECTRA [Suspect]
     Active Substance: INFLIXIMAB-DYYB
     Dosage: 400 MG EVERY 8 WEEKS
     Route: 042
     Dates: start: 20210510
  14. INFLECTRA [Suspect]
     Active Substance: INFLIXIMAB-DYYB
     Dosage: 400 MG EVERY 8 WEEKS
     Route: 041
     Dates: start: 20210728
  15. INFLECTRA [Suspect]
     Active Substance: INFLIXIMAB-DYYB
     Dosage: 400 MG EVERY 8 WEEKS
     Route: 041
     Dates: start: 20210922
  16. INFLECTRA [Suspect]
     Active Substance: INFLIXIMAB-DYYB
     Dosage: 400 MG EVERY 8 WEEKS
     Route: 042
     Dates: start: 20211129
  17. INFLECTRA [Suspect]
     Active Substance: INFLIXIMAB-DYYB
     Dosage: 400 MG, EVERY 8 WEEKS
     Route: 041
     Dates: start: 20220112
  18. INFLECTRA [Suspect]
     Active Substance: INFLIXIMAB-DYYB
     Dosage: 400 MG, EVERY 4 WEEKS
     Route: 041
     Dates: start: 20220208
  19. AVELOX [Concomitant]
     Active Substance: MOXIFLOXACIN HYDROCHLORIDE
     Dosage: 1 DF FOR 10 DAYS . STATUS UNKNOWN
     Route: 065
  20. BENZOCAIN [Concomitant]
     Active Substance: BENZOCAINE
     Dosage: 1 DF, DOSAGE INFORMATION NOT AVAILABLE. STATUS UNKNOWN
     Route: 065
  21. ENTOCORT [Concomitant]
     Active Substance: BUDESONIDE
     Dosage: 9 MG, 1X/DAY (OD FOR 4 WEEKS)
     Route: 048
  22. FENTANYL [Concomitant]
     Active Substance: FENTANYL\FENTANYL CITRATE
     Indication: Sedation
     Dosage: 75 UG, UNK
     Route: 042
     Dates: start: 20181023
  23. MIDAZOLAM [Concomitant]
     Active Substance: MIDAZOLAM
     Indication: Sedation
     Dosage: 4 MG, UNK
     Route: 042
     Dates: start: 20181023
  24. NEXIUM [Concomitant]
     Active Substance: ESOMEPRAZOLE MAGNESIUM
     Dosage: 1 DF, DOSAGE INFORMATION NOT AVAILABLE/STATUS UNKNOWN
  25. VERSED [Concomitant]
     Active Substance: MIDAZOLAM HYDROCHLORIDE
     Dosage: 1 DF, DOSAGE INFORMATION NOT AVAILABLE
     Route: 065

REACTIONS (24)
  - Uveitis [Unknown]
  - Therapeutic product effect incomplete [Unknown]
  - Drug specific antibody present [Unknown]
  - Off label use [Unknown]
  - Off label use [Unknown]
  - Intentional product use issue [Unknown]
  - Inappropriate schedule of product administration [Unknown]
  - Condition aggravated [Unknown]
  - Influenza [Recovered/Resolved]
  - Pyrexia [Not Recovered/Not Resolved]
  - Productive cough [Not Recovered/Not Resolved]
  - Nasopharyngitis [Not Recovered/Not Resolved]
  - Malaise [Not Recovered/Not Resolved]
  - Sinusitis [Recovered/Resolved]
  - Stress [Unknown]
  - Oropharyngeal pain [Unknown]
  - Throat irritation [Unknown]
  - Blood pressure increased [Unknown]
  - Arthralgia [Unknown]
  - Aphthous ulcer [Unknown]
  - Faecal calprotectin increased [Unknown]
  - Abdominal pain [Not Recovered/Not Resolved]
  - Diarrhoea [Not Recovered/Not Resolved]
  - Reflux gastritis [Unknown]

NARRATIVE: CASE EVENT DATE: 20190102
